FAERS Safety Report 10031565 (Version 2)
Quarter: 2014Q2

REPORT INFORMATION
  Report Type: Spontaneous
  Country: SE (occurrence: SE)
  Receive Date: 20140324
  Receipt Date: 20140424
  Transmission Date: 20141212
  Serious: Yes (Hospitalization)
  Sender: FDA-Public Use
  Company Number: SE-NOVOPROD-403708

PATIENT
  Age: 66 Year
  Sex: Female
  Weight: 58 kg

DRUGS (3)
  1. NOVORAPID FLEXPEN [Suspect]
     Indication: TYPE 1 DIABETES MELLITUS
     Dosage: 4 IU, TID (4 IU AT MEALTIME)
     Route: 058
  2. NOVORAPID PENFILL [Suspect]
     Indication: TYPE 1 DIABETES MELLITUS
     Dosage: 4 IU, TID (4 IU AT MEALTIME)
     Route: 058
  3. LANTUS [Concomitant]
     Indication: TYPE 1 DIABETES MELLITUS
     Dosage: 12 IU, QD (ONCE IN THE MORNING) LANTUS SOLOSTAR
     Route: 058

REACTIONS (2)
  - Myocardial infarction [Not Recovered/Not Resolved]
  - Device malfunction [Unknown]
